FAERS Safety Report 20357960 (Version 1)
Quarter: 2022Q1

REPORT INFORMATION
  Report Type: Spontaneous
  Country: US (occurrence: US)
  Receive Date: 20220120
  Receipt Date: 20220120
  Transmission Date: 20220423
  Serious: Yes (Life-Threatening)
  Sender: FDA-Public Use
  Company Number: US-ELI_LILLY_AND_COMPANY-US202201007078

PATIENT
  Age: 32 Year
  Sex: Female

DRUGS (2)
  1. ETESEVIMAB [Suspect]
     Active Substance: ETESEVIMAB
     Indication: COVID-19
     Dosage: 1400 MG, SINGLE
     Route: 041
     Dates: start: 20220118, end: 20220118
  2. BAMLANIVIMAB [Suspect]
     Active Substance: BAMLANIVIMAB
     Indication: COVID-19
     Dosage: 700 MG, SINGLE
     Route: 041
     Dates: start: 20220118, end: 20220118

REACTIONS (5)
  - Dyspnoea [Unknown]
  - Flushing [Unknown]
  - Lip oedema [Unknown]
  - Infusion related reaction [Unknown]
  - Chest discomfort [Unknown]

NARRATIVE: CASE EVENT DATE: 20220118
